FAERS Safety Report 8198092 (Version 2)
Quarter: 2018Q4

REPORT INFORMATION
  Report Type: Report from Study
  Country: JP (occurrence: JP)
  Receive Date: 20111025
  Receipt Date: 20181126
  Transmission Date: 20190205
  Serious: Yes (Hospitalization)
  Sender: FDA-Public Use
  Company Number: PHHY2009JP22134

PATIENT
  Age: 60 Year
  Sex: Female
  Weight: 37 kg

DRUGS (11)
  1. TAKEPRON [Concomitant]
     Active Substance: LANSOPRAZOLE
     Dosage: 30 MG, UNK
     Route: 048
     Dates: start: 20090525
  2. EXJADE [Suspect]
     Active Substance: DEFERASIROX
     Indication: IRON OVERLOAD
     Dosage: 500 MG, QD
     Route: 048
     Dates: start: 20090609, end: 20090801
  3. EXJADE [Suspect]
     Active Substance: DEFERASIROX
     Dosage: 100 MG, QD
     Route: 048
     Dates: start: 20091013, end: 20091120
  4. LASIX [Concomitant]
     Active Substance: FUROSEMIDE
     Indication: CARDIAC FAILURE
     Dosage: 20 MG,
     Route: 048
     Dates: start: 20090326
  5. PRIMOBOLAN-DEPOT [Concomitant]
     Active Substance: METHENOLONE ENANTHATE
     Indication: MYELOFIBROSIS
     Dosage: 15 MG, UNK
     Route: 048
     Dates: start: 20090609
  6. EXJADE [Suspect]
     Active Substance: DEFERASIROX
     Dosage: 500 MG, QD
     Route: 048
     Dates: start: 20090908, end: 20090927
  7. EXJADE [Suspect]
     Active Substance: DEFERASIROX
     Indication: MYELOFIBROSIS
     Dosage: 500 MG, QD
     Route: 048
     Dates: start: 20090512, end: 20090523
  8. ALDACTONE-A [Concomitant]
     Active Substance: SPIRONOLACTONE
     Indication: CARDIAC FAILURE
     Dosage: 25 MG, UNK
     Route: 048
     Dates: start: 20090326
  9. RED CELLS MAP [Concomitant]
     Active Substance: HUMAN RED BLOOD CELL
     Dosage: 2 UNITS EVERY 1 TO 2 WEEKS
     Dates: start: 20090323
  10. EXJADE [Suspect]
     Active Substance: DEFERASIROX
     Dosage: UNK
     Route: 048
  11. FRANDOL [Concomitant]
     Active Substance: ISOSORBIDE DINITRATE
     Indication: CARDIAC FAILURE
     Dosage: 40 MG, UNK
     Route: 062
     Dates: start: 20090326

REACTIONS (20)
  - Proteinuria [Not Recovered/Not Resolved]
  - Gastrointestinal disorder [Recovered/Resolved]
  - White blood cell count increased [Not Recovered/Not Resolved]
  - Nausea [Recovered/Resolved]
  - Leukaemia [Not Recovered/Not Resolved]
  - Monocyte count increased [Not Recovered/Not Resolved]
  - Decreased appetite [Recovered/Resolved]
  - Nausea [Recovered/Resolved]
  - Vomiting [Unknown]
  - Nausea [Unknown]
  - Gastrointestinal infection [Recovered/Resolved]
  - Diarrhoea [Unknown]
  - Neutrophil count decreased [Not Recovered/Not Resolved]
  - Gastrointestinal infection [Recovered/Resolved]
  - Decreased appetite [Recovered/Resolved]
  - Nausea [Recovered/Resolved]
  - Nausea [Recovered/Resolved]
  - Renal impairment [Not Recovered/Not Resolved]
  - Malignant neoplasm progression [Not Recovered/Not Resolved]
  - Decreased appetite [Recovered/Resolved]

NARRATIVE: CASE EVENT DATE: 20090523
